FAERS Safety Report 5060842-9 (Version None)
Quarter: 2006Q3

REPORT INFORMATION
  Report Type: 
  Country: None (occurrence: None)
  Receive Date: 20060725
  Receipt Date: 20060609
  Transmission Date: 20061208
  Serious: Yes (Life-Threatening, Hospitalization, Other)
  Sender: FDA-Public Use
  Company Number: AU-GLAXOSMITHKLINE-B0427471A

PATIENT
  Age: 58 Year
  Sex: Male
  Weight: 60 kg

DRUGS (7)
  1. ZYBAN [Suspect]
     Indication: SMOKING CESSATION THERAPY
     Dosage: 150MG TWICE PER DAY
     Route: 048
     Dates: start: 20060423, end: 20060429
  2. ASPIRIN [Concomitant]
     Indication: THROMBOSIS PROPHYLAXIS
     Dosage: 100MG PER DAY
     Dates: start: 19980101
  3. LIPITOR [Concomitant]
     Indication: BLOOD CHOLESTEROL INCREASED
     Dosage: 40MG PER DAY
     Dates: start: 19980512
  4. TRITACE [Concomitant]
     Indication: BLOOD PRESSURE
     Dosage: 5MG PER DAY
     Dates: start: 20011001
  5. NEXIUM [Concomitant]
     Indication: GASTROOESOPHAGEAL REFLUX DISEASE
     Dosage: 20MG PER DAY
     Dates: start: 20050401
  6. DILTIAZEM HCL [Concomitant]
     Indication: BLOOD PRESSURE
     Dosage: 180MG PER DAY
     Dates: start: 20020801
  7. ALCOHOL [Concomitant]

REACTIONS (5)
  - CEREBROVASCULAR ACCIDENT [None]
  - COORDINATION ABNORMAL [None]
  - DIZZINESS [None]
  - IMPAIRED DRIVING ABILITY [None]
  - MALAISE [None]
